FAERS Safety Report 8790677 (Version 1)
Quarter: 2012Q4

REPORT INFORMATION
  Report Type: Spontaneous
  Country: US (occurrence: None)
  Receive Date: 20120913
  Receipt Date: 20120913
  Transmission Date: 20130627
  Serious: Yes (Disabling, Other)
  Sender: FDA-Public Use
  Company Number: None

PATIENT
  Age: 47 Year
  Sex: Female
  Weight: 63.5 kg

DRUGS (1)
  1. TERBINAFINE [Suspect]
     Indication: FUNGAL INFECTION OF NAIL
     Route: 048

REACTIONS (3)
  - Dysgeusia [None]
  - Dysgeusia [None]
  - Dysgeusia [None]
